FAERS Safety Report 10937633 (Version 2)
Quarter: 2015Q2

REPORT INFORMATION
  Report Type: Spontaneous
  Country: US (occurrence: US)
  Receive Date: 20150321
  Receipt Date: 20150525
  Transmission Date: 20150821
  Serious: No
  Sender: FDA-Public Use
  Company Number: US-JNJFOC-20140507246

PATIENT
  Age: 51 Year
  Sex: Male

DRUGS (6)
  1. STELARA [Suspect]
     Active Substance: USTEKINUMAB
     Indication: PSORIASIS
     Dosage: SECOND DOSE
     Route: 058
  2. STELARA [Suspect]
     Active Substance: USTEKINUMAB
     Indication: PSORIASIS
     Route: 058
  3. DOVONEX [Concomitant]
     Active Substance: CALCIPOTRIENE
     Dosage: IN THE MORNING
     Route: 061
     Dates: start: 20140213
  4. CLOBEX [Concomitant]
     Active Substance: CLOBETASOL PROPIONATE
     Dosage: LEAVE ON FOR 5 MINUTES BEFORE RINSING
     Route: 061
     Dates: start: 20111230
  5. TACLONEX [Concomitant]
     Active Substance: BETAMETHASONE DIPROPIONATE\CALCIPOTRIENE\CALCIPOTRIENE HYDRATE
     Dosage: TWICE A DAY FOR TWO WEEKS FOLLOWED BY TWO WEEKS OFF
     Route: 061
     Dates: start: 20121219
  6. STELARA [Suspect]
     Active Substance: USTEKINUMAB
     Indication: PSORIASIS
     Dosage: FIRST DOSE
     Route: 058
     Dates: start: 20140424

REACTIONS (2)
  - Device malfunction [Unknown]
  - Drug dose omission [Recovered/Resolved]

NARRATIVE: CASE EVENT DATE: 20140424
